FAERS Safety Report 7900661-6 (Version None)
Quarter: 2011Q4

REPORT INFORMATION
  Report Type: 
  Country: None (occurrence: None)
  Receive Date: 20111108
  Receipt Date: 20111103
  Transmission Date: 20120403
  Serious: Yes (Hospitalization)
  Sender: FDA-Public Use
  Company Number: US-SHIRE-ALL1-2011-04310

PATIENT
  Sex: Female
  Weight: 58.957 kg

DRUGS (13)
  1. VYVANSE [Suspect]
     Indication: DISTURBANCE IN ATTENTION
     Dosage: 70 MG, 1X/DAY:QD
     Route: 048
     Dates: start: 20100101
  2. DITROPAN [Concomitant]
     Indication: URINARY INCONTINENCE
     Dosage: 5 MG, 2X/DAY:BID
     Route: 048
     Dates: start: 20070101
  3. ETODOLAC [Concomitant]
     Indication: ARTHRITIS
     Dosage: 400 MG, 1X/DAY:QD
     Route: 048
  4. LISINOPRIL [Concomitant]
     Indication: BLOOD PRESSURE INCREASED
     Dosage: 10 MG, 1X/DAY:QD
     Route: 048
  5. PREMARIN [Concomitant]
     Indication: HOT FLUSH
     Dosage: 0.625 MG, 1X/DAY:QD
     Route: 048
     Dates: start: 20090101
  6. VENTOLIN [Concomitant]
     Indication: ASTHMA
     Dosage: EVERY 4 HOURS , AS REQ'D
     Route: 055
  7. FLEXERIL [Concomitant]
     Indication: MUSCLE SPASMS
     Dosage: 10 MG, 3X/DAY:TID
     Route: 048
     Dates: start: 19940101
  8. SINGULAIR [Concomitant]
     Indication: SEASONAL ALLERGY
     Dosage: 10 MG, 1X/DAY:QD
     Route: 048
  9. VALIUM [Concomitant]
     Indication: TREMOR
     Dosage: UNK, 1X/DAY:QD
     Route: 048
  10. HYDROCODONE BITARTRATE [Concomitant]
     Indication: PAIN
     Dosage: THREE 10/325 TABLETS Q 6 HOURS
     Route: 048
  11. TRAZODONE HYDROCHLORIDE [Concomitant]
     Indication: PSYCHOLOGICAL TRAUMA
     Dosage: 200 MG, 1X/DAY:QD
     Route: 048
     Dates: start: 20050101
  12. VITAMINS NOS [Concomitant]
     Indication: ROUTINE HEALTH MAINTENANCE
     Dosage: UNK, 1X/DAY:QD
     Route: 048
  13. CELEXA [Concomitant]
     Indication: DEPRESSION
     Dosage: 40 MG, 2X/DAY:BID
     Route: 048
     Dates: start: 20050101

REACTIONS (8)
  - ULTRASOUND SCAN ABNORMAL [None]
  - CHOLELITHIASIS [None]
  - GALLBLADDER DISORDER [None]
  - SOMNOLENCE [None]
  - ROAD TRAFFIC ACCIDENT [None]
  - DISTURBANCE IN ATTENTION [None]
  - HERNIA [None]
  - PRODUCT QUALITY ISSUE [None]
